FAERS Safety Report 6880215-3 (Version None)
Quarter: 2010Q3

REPORT INFORMATION
  Report Type: 
  Country: None (occurrence: None)
  Receive Date: 20100728
  Receipt Date: 20100714
  Transmission Date: 20110219
  Serious: Yes (Disabling)
  Sender: FDA-Public Use
  Company Number: CA-SANOFI-AVENTIS-2010SA035321

PATIENT
  Age: 49 Year
  Sex: Male

DRUGS (5)
  1. FLUDARABINE PHOSPHATE [Suspect]
     Indication: HAIRY CELL LEUKAEMIA
     Dosage: EVERY 28 DAYS
     Route: 048
     Dates: start: 20080902, end: 20080906
  2. FLUDARABINE PHOSPHATE [Suspect]
     Dosage: EVERY 28 DAYS
     Route: 048
     Dates: start: 20090115, end: 20090119
  3. FLUDARABINE PHOSPHATE [Suspect]
     Dosage: EVERY 28 DAYS
     Route: 048
     Dates: start: 20090226, end: 20090302
  4. FLUDARABINE PHOSPHATE [Suspect]
     Dosage: EVERY 28 DAYS
     Route: 048
     Dates: start: 20090401, end: 20090405
  5. FLUDARABINE PHOSPHATE [Suspect]
     Dosage: EVERY 28 DAYS
     Route: 048
     Dates: start: 20090611, end: 20090615

REACTIONS (4)
  - COORDINATION ABNORMAL [None]
  - DIZZINESS [None]
  - HEADACHE [None]
  - OFF LABEL USE [None]
